FAERS Safety Report 5974886-3 (Version None)
Quarter: 2008Q4

REPORT INFORMATION
  Report Type: 
  Country: None (occurrence: None)
  Receive Date: 20081202
  Receipt Date: 20081120
  Transmission Date: 20090506
  Serious: Yes (Death, Hospitalization, Other)
  Sender: FDA-Public Use
  Company Number: JP-PFIZER INC-2008099219

PATIENT
  Sex: Male
  Weight: 67 kg

DRUGS (4)
  1. SUTENT [Suspect]
     Indication: RENAL CELL CARCINOMA
     Route: 048
     Dates: start: 20080917, end: 20080926
  2. OXYCONTIN [Concomitant]
     Route: 048
  3. NOVAMIN [Concomitant]
     Route: 048
  4. LACTULOSE [Concomitant]
     Route: 048

REACTIONS (5)
  - ANAEMIA [None]
  - DEATH [None]
  - HYPOALBUMINAEMIA [None]
  - NEUTROPENIA [None]
  - PLATELET COUNT DECREASED [None]
